FAERS Safety Report 8343647-2 (Version None)
Quarter: 2012Q2

REPORT INFORMATION
  Report Type: 
  Country: None (occurrence: None)
  Receive Date: 20120508
  Receipt Date: 20100715
  Transmission Date: 20120825
  Serious: No
  Sender: FDA-Public Use
  Company Number: US-TEVA-2010003799

PATIENT
  Sex: Male
  Weight: 105.78 kg

DRUGS (1)
  1. TREANDA [Suspect]
     Indication: NON-HODGKIN'S LYMPHOMA
     Route: 042
     Dates: start: 20100715

REACTIONS (2)
  - INFUSION SITE PAIN [None]
  - INFUSION SITE EXTRAVASATION [None]
